FAERS Safety Report 11710691 (Version 2)
Quarter: 2015Q4

REPORT INFORMATION
  Report Type: Spontaneous
  Country: US (occurrence: US)
  Receive Date: 20151104
  Receipt Date: 20151110
  Transmission Date: 20160304
  Serious: No
  Sender: FDA-Public Use
  Company Number: US-ELI_LILLY_AND_COMPANY-US201107006841

PATIENT
  Age: 89 Year
  Sex: Female
  Weight: 42.63 kg

DRUGS (5)
  1. FORTEO [Suspect]
     Active Substance: TERIPARATIDE
     Dosage: 20 UG, QD
  2. FORTEO [Suspect]
     Active Substance: TERIPARATIDE
     Dosage: 20 UG, QD
  3. FORTEO [Suspect]
     Active Substance: TERIPARATIDE
     Indication: OSTEOPOROSIS
     Dosage: 20 UG, QD
     Route: 065
     Dates: start: 20110601
  4. FORTEO [Suspect]
     Active Substance: TERIPARATIDE
     Dosage: 20 UG, QD
  5. FORTEO [Suspect]
     Active Substance: TERIPARATIDE
     Dosage: 20 UG, QD
     Dates: end: 20120306

REACTIONS (7)
  - Medication error [Unknown]
  - Bone density abnormal [Unknown]
  - Intentional product misuse [Unknown]
  - Weight decreased [Recovered/Resolved]
  - Blood test abnormal [Unknown]
  - Drug dose omission [Unknown]
  - Weight gain poor [Unknown]

NARRATIVE: CASE EVENT DATE: 201110
